FAERS Safety Report 9416391 (Version 2)
Quarter: 2013Q3

REPORT INFORMATION
  Report Type: Spontaneous
  Country: US (occurrence: US)
  Receive Date: 20130724
  Receipt Date: 20130829
  Transmission Date: 20140515
  Serious: Yes (Hospitalization)
  Sender: FDA-Public Use
  Company Number: US-PFIZER INC-2013210916

PATIENT
  Age: 57 Year
  Sex: Female

DRUGS (1)
  1. TAXOL [Suspect]
     Indication: BREAST CANCER
     Dosage: 140 MG, WEEKLY (CYCLIC)
     Route: 042
     Dates: start: 20130621

REACTIONS (1)
  - Pyrexia [Recovered/Resolved]
